FAERS Safety Report 11898374 (Version 1)
Quarter: 2016Q1

REPORT INFORMATION
  Report Type: Spontaneous
  Country: GB (occurrence: GB)
  Receive Date: 20160108
  Receipt Date: 20160108
  Transmission Date: 20160526
  Serious: Yes (Other)
  Sender: FDA-Public Use
  Company Number: GB-NOVOPROD-475700

PATIENT
  Age: 51 Year
  Sex: Male
  Weight: 131 kg

DRUGS (10)
  1. FLUOXETINE [Suspect]
     Active Substance: FLUOXETINE HYDROCHLORIDE
     Indication: DEPRESSION
     Dosage: UNK
     Route: 048
  2. CANDESARTAN [Concomitant]
     Active Substance: CANDESARTAN
  3. TOSTRAN [Concomitant]
     Active Substance: TESTOSTERONE
  4. PIZOTIFEN [Concomitant]
     Active Substance: PIZOTYLINE
  5. SIMVASTATIN. [Concomitant]
     Active Substance: SIMVASTATIN
  6. FLIXONASE AQUEOUS [Concomitant]
  7. VICTOZA [Suspect]
     Active Substance: LIRAGLUTIDE
     Indication: TYPE 2 DIABETES MELLITUS
     Dosage: 1.2 MG, UNK
     Route: 051
     Dates: start: 20151208
  8. LANSOPRAZOLE. [Concomitant]
     Active Substance: LANSOPRAZOLE
  9. METFORMIN ACTAVIS [Concomitant]
     Active Substance: METFORMIN HYDROCHLORIDE
  10. CETIRIZINE [Concomitant]
     Active Substance: CETIRIZINE HYDROCHLORIDE

REACTIONS (2)
  - Inhibitory drug interaction [Not Recovered/Not Resolved]
  - Affect lability [Not Recovered/Not Resolved]

NARRATIVE: CASE EVENT DATE: 20151215
